FAERS Safety Report 14943197 (Version 1)
Quarter: 2018Q2

REPORT INFORMATION
  Report Type: Spontaneous
  Country: HR (occurrence: HR)
  Receive Date: 20180528
  Receipt Date: 20180528
  Transmission Date: 20180711
  Serious: Yes (Hospitalization, Other)
  Sender: FDA-Public Use
  Company Number: HR-LUPIN PHARMACEUTICALS INC.-2018-03903

PATIENT
  Age: 29 Year
  Sex: Female

DRUGS (1)
  1. AZITHROMYCIN TABLETS [Suspect]
     Active Substance: AZITHROMYCIN ANHYDROUS
     Indication: PNEUMONIA
     Dosage: 500 MG, QD (3 TABLETS TOTAL)
     Route: 048

REACTIONS (1)
  - Dermatitis bullous [Recovered/Resolved]
